FAERS Safety Report 5054944-0 (Version None)
Quarter: 2006Q3

REPORT INFORMATION
  Report Type: 
  Country: None (occurrence: None)
  Receive Date: 20060719
  Receipt Date: 20060628
  Transmission Date: 20061208
  Serious: Yes (Hospitalization)
  Sender: FDA-Public Use
  Company Number: US-AVENTIS-200616835GDDC

PATIENT
  Age: 66 Year
  Sex: Female
  Weight: 54.4 kg

DRUGS (9)
  1. TAXOTERE [Suspect]
     Indication: OVARIAN CANCER
     Dosage: DOSE UNIT: MILLIGRAM PER MILLILITRE
     Route: 042
  2. TOPOTECAN [Suspect]
     Indication: OVARIAN CANCER
     Dosage: DOSE UNIT: MILLIGRAM PER MILLILITRE
     Route: 042
  3. ATENOLOL [Concomitant]
     Dosage: DOSE: UNK
  4. HYDROCHLOROTHIAZIDE [Concomitant]
     Dosage: DOSE: UNK
  5. NIFEDIPINE [Concomitant]
     Dosage: DOSE: UNK
  6. COUMADIN [Concomitant]
     Dosage: DOSE: UNK
  7. FERROUS SULFATE TAB [Concomitant]
     Dosage: DOSE: UNK
  8. COLACE [Concomitant]
     Dosage: DOSE: UNK
  9. COMPAZINE [Concomitant]
     Dosage: DOSE: UNK

REACTIONS (6)
  - ABDOMINAL DISTENSION [None]
  - ANAEMIA [None]
  - DIZZINESS [None]
  - HYPOTENSION [None]
  - PLATELET COUNT DECREASED [None]
  - WHITE BLOOD CELL COUNT DECREASED [None]
